FAERS Safety Report 19808791 (Version 4)
Quarter: 2021Q4

REPORT INFORMATION
  Report Type: Report from Study
  Country: US (occurrence: US)
  Receive Date: 20210909
  Receipt Date: 20211011
  Transmission Date: 20220304
  Serious: No
  Sender: FDA-Public Use
  Company Number: NVSC2021US204516

PATIENT
  Sex: Male

DRUGS (2)
  1. ENTRESTO [Suspect]
     Active Substance: SACUBITRIL\VALSARTAN
     Indication: Product used for unknown indication
     Dosage: 1 DF (24/26MG)
     Route: 065
  2. AMIODARONE [Concomitant]
     Active Substance: AMIODARONE
     Indication: Product used for unknown indication
     Dosage: UNK
     Route: 065

REACTIONS (8)
  - Weight decreased [Unknown]
  - Glycosylated haemoglobin increased [Unknown]
  - Peripheral swelling [Unknown]
  - Magnetic resonance imaging heart [Unknown]
  - Blood creatinine increased [Unknown]
  - Wrong technique in product usage process [Unknown]
  - Blood potassium increased [Unknown]
  - Intentional product use issue [Unknown]
